FAERS Safety Report 4812379-7 (Version None)
Quarter: 2005Q4

REPORT INFORMATION
  Report Type: 
  Country: None (occurrence: None)
  Receive Date: 20051028
  Receipt Date: 20050120
  Transmission Date: 20060501
  Serious: No
  Sender: FDA-Public Use
  Company Number: US-GLAXOSMITHKLINE-A0541537A

PATIENT
  Sex: Female

DRUGS (9)
  1. ADVAIR DISKUS 100/50 [Suspect]
     Indication: ASTHMA
     Dosage: 1PUFF TWICE PER DAY
     Route: 055
     Dates: start: 20020101
  2. ALBUTEROL [Concomitant]
  3. TENORMIN [Concomitant]
  4. LIPITOR [Concomitant]
  5. ATACAND [Concomitant]
  6. PRILOSEC [Concomitant]
  7. GLUCOPHAGE [Concomitant]
  8. TEGRETOL [Concomitant]
  9. MIACALCIN [Concomitant]

REACTIONS (1)
  - DRUG INEFFECTIVE [None]
